FAERS Safety Report 6919072-5 (Version None)
Quarter: 2010Q3

REPORT INFORMATION
  Report Type: 
  Country: None (occurrence: None)
  Receive Date: 20100811
  Receipt Date: 20100729
  Transmission Date: 20110219
  Serious: Yes (Hospitalization, Other)
  Sender: FDA-Public Use
  Company Number: PHHY2010JP46458

PATIENT
  Sex: Female
  Weight: 59 kg

DRUGS (11)
  1. GLEEVEC [Suspect]
     Indication: CHRONIC MYELOID LEUKAEMIA
     Dosage: 400 MG DAILY
     Route: 048
     Dates: start: 20100701, end: 20100709
  2. CONIEL [Concomitant]
     Dosage: UNK
     Route: 048
     Dates: start: 20050101
  3. LASIX [Concomitant]
     Dosage: UNK
     Route: 048
     Dates: start: 20050101
  4. DIOVAN [Concomitant]
     Indication: HYPERTENSION
     Dosage: 80 MG, UNK
     Route: 048
     Dates: start: 20060707
  5. HYDREA [Concomitant]
     Indication: CHRONIC MYELOID LEUKAEMIA
     Dosage: 2000 MG, UNK
     Route: 048
     Dates: start: 20100530, end: 20100608
  6. SELBEX [Concomitant]
     Indication: HYPERTENSION
     Dosage: 150 MG, UNK
     Route: 048
     Dates: start: 20060707
  7. URSO 250 [Concomitant]
     Indication: POLYURIA
     Dosage: 200 MG, UNK
     Route: 048
     Dates: start: 20060707
  8. ASPIRIN [Concomitant]
     Indication: PROPHYLAXIS
     Dosage: 100 MG, UNK
     Route: 048
     Dates: start: 20080107
  9. AMLODIPINE BESYLATE [Concomitant]
     Indication: HYPERTENSION
     Dosage: 10 MG, UNK
     Route: 048
     Dates: start: 20070115
  10. WYTENS [Concomitant]
     Indication: HYPERTENSION
     Dosage: 2 MG, UNK
     Route: 048
     Dates: start: 20070115
  11. LUPRAC [Concomitant]
     Indication: HYPERTENSION
     Dosage: 8 MG, UNK
     Route: 048
     Dates: start: 20080616

REACTIONS (15)
  - ABDOMINAL DISCOMFORT [None]
  - BLADDER CATHETER TEMPORARY [None]
  - CONTUSION [None]
  - DECREASED APPETITE [None]
  - DYSPNOEA [None]
  - DYSURIA [None]
  - FALL [None]
  - FLUID RETENTION [None]
  - GENERALISED OEDEMA [None]
  - HEADACHE [None]
  - HYPONATRAEMIA [None]
  - MALAISE [None]
  - NAUSEA [None]
  - URINE OUTPUT DECREASED [None]
  - VOMITING [None]
